FAERS Safety Report 9490622 (Version 3)
Quarter: 2013Q4

REPORT INFORMATION
  Report Type: Report from Study
  Country: BR (occurrence: BR)
  Receive Date: 20130830
  Receipt Date: 20131017
  Transmission Date: 20140711
  Serious: Yes (Life-Threatening)
  Sender: FDA-Public Use
  Company Number: PHHY2013BR094302

PATIENT
  Sex: Female

DRUGS (13)
  1. EXELON PATCH [Suspect]
     Indication: DEMENTIA
     Dosage: 9.5 MG/5CM2 (4.6MG/24HOURS) 1 ADHESIVE DAILY
     Route: 062
     Dates: start: 20130705
  2. EXELON PATCH [Suspect]
     Dosage: 18MG/10CM2 (9.5MG/24HOURS), 1 ADHESIVE DAILY
     Route: 062
  3. EXELON PATCH [Suspect]
     Dosage: 18MG/10CM2 (9.5MG/24HOURS) 1/2 ADHESIVE DAILY
     Route: 062
  4. PURAN T4 [Suspect]
     Indication: HYPOTHYROIDISM
     Dosage: 1 DF, DAILY
     Route: 048
     Dates: start: 2007
  5. ADEFORTE [Suspect]
     Indication: VITAMIN SUPPLEMENTATION
     Dosage: 8 DROPS, DAILY
     Route: 048
  6. COMBIRON [Suspect]
     Indication: VITAMIN SUPPLEMENTATION
     Dosage: 1 DF, DAILY
     Route: 048
  7. CITONEURIN /00176001/ [Suspect]
     Indication: VITAMIN SUPPLEMENTATION
     Dosage: 1 DF, DAILY
     Route: 048
  8. LOSARTAN [Suspect]
     Indication: HYPERTENSION
     Dosage: 1 DF, DAILY
     Route: 048
  9. OSCAL D [Suspect]
     Indication: MINERAL SUPPLEMENTATION
     Dosage: 1 DF, DAILY
     Route: 048
  10. GLIFAGE [Suspect]
     Indication: DIABETES MELLITUS
     Dosage: 2 DF, DAILY
     Route: 048
     Dates: start: 2007
  11. CLINFAR [Suspect]
     Indication: BLOOD CHOLESTEROL INCREASED
     Dosage: 1 DF, DAILY
     Route: 048
  12. XALATAN [Suspect]
     Indication: INTRAOCULAR PRESSURE TEST ABNORMAL
     Dosage: 1 DROP ON BOTH EYES, DAILY
     Dates: start: 2009
  13. TRUSOPT [Suspect]
     Indication: INTRAOCULAR PRESSURE TEST ABNORMAL
     Dosage: 1 DROP ON BOTH EYES, TID
     Dates: start: 2009

REACTIONS (12)
  - Apparent death [Unknown]
  - Eating disorder [Unknown]
  - Incorrect drug administration duration [Unknown]
  - Wrong technique in drug usage process [Unknown]
  - Depressed mood [Not Recovered/Not Resolved]
  - Anaemia [Unknown]
  - Anxiety [Unknown]
  - Asthenia [Not Recovered/Not Resolved]
  - Dizziness [Not Recovered/Not Resolved]
  - Application site pruritus [Not Recovered/Not Resolved]
  - Gait disturbance [Unknown]
  - Malaise [Not Recovered/Not Resolved]
